FAERS Safety Report 19201917 (Version 1)
Quarter: 2021Q2

REPORT INFORMATION
  Report Type: Report from Study
  Country: DE (occurrence: DE)
  Receive Date: 20210430
  Receipt Date: 20210430
  Transmission Date: 20210717
  Serious: Yes (Hospitalization)
  Sender: FDA-Public Use
  Company Number: DE-TAKEDA-ALL1-2013-08822

PATIENT
  Age: 2 Year
  Sex: Male

DRUGS (2)
  1. IDURSULFASE [Suspect]
     Active Substance: IDURSULFASE
     Indication: MUCOPOLYSACCHARIDOSIS II
     Dosage: 0.58 MG/KG, 1X/WEEK
     Route: 041
     Dates: start: 20060912
  2. DIMETINDENE [Concomitant]
     Active Substance: DIMETHINDENE
     Indication: PREMEDICATION
     Dosage: 0.75 MG, AS REQ^D
     Route: 048
     Dates: start: 20061102

REACTIONS (3)
  - Adenoidal hypertrophy [Recovered/Resolved]
  - Upper respiratory tract infection [Recovered/Resolved]
  - Conjunctivitis allergic [Recovered/Resolved]

NARRATIVE: CASE EVENT DATE: 20061025
